FAERS Safety Report 8585479-6 (Version None)
Quarter: 2012Q3

REPORT INFORMATION
  Report Type: 
  Country: None (occurrence: None)
  Receive Date: 20120810
  Receipt Date: 20120131
  Transmission Date: 20120928
  Serious: No
  Sender: FDA-Public Use
  Company Number: US-GLAXOSMITHKLINE-A0964016A

PATIENT
  Sex: Male

DRUGS (2)
  1. AZILECT [Concomitant]
  2. REQUIP XL [Suspect]
     Indication: PARKINSON'S DISEASE
     Route: 048
     Dates: start: 20110901

REACTIONS (1)
  - JOINT SWELLING [None]
